FAERS Safety Report 8552811-9 (Version None)
Quarter: 2012Q3

REPORT INFORMATION
  Report Type: 
  Country: None (occurrence: None)
  Receive Date: 20120731
  Receipt Date: 20120702
  Transmission Date: 20120928
  Serious: Yes (Death)
  Sender: FDA-Public Use
  Company Number: DE-UCBSA-000208

PATIENT
  Sex: Male

DRUGS (4)
  1. NEUPRO [Suspect]
     Route: 062
     Dates: start: 20081001, end: 20080101
  2. NEUPRO [Suspect]
     Route: 062
     Dates: start: 20080101
  3. NEUPRO [Suspect]
     Route: 062
     Dates: start: 20080101, end: 20080101
  4. NEUPRO [Suspect]
     Route: 062
     Dates: start: 20080101, end: 20080101

REACTIONS (2)
  - RASH [None]
  - DEATH [None]
